FAERS Safety Report 18792881 (Version 2)
Quarter: 2025Q3

REPORT INFORMATION
  Report Type: Spontaneous
  Country: EU (occurrence: EU)
  Receive Date: 20210127
  Receipt Date: 20250708
  Transmission Date: 20251021
  Serious: Yes (Hospitalization, Other)
  Sender: AUROBINDO
  Company Number: EU-AUROBINDO-AUR-APL-2021-003173

PATIENT
  Age: 55 Year
  Sex: Female

DRUGS (5)
  1. DESMOPRESSIN [Suspect]
     Active Substance: DESMOPRESSIN
     Indication: Tooth extraction
     Route: 048
  2. DESMOPRESSIN [Suspect]
     Active Substance: DESMOPRESSIN
     Indication: Analgesic therapy
  3. IBUPROFEN [Suspect]
     Active Substance: IBUPROFEN
     Indication: Pain
     Route: 048
  4. IBUPROFEN [Suspect]
     Active Substance: IBUPROFEN
     Indication: General symptom
  5. IBUPROFEN [Suspect]
     Active Substance: IBUPROFEN
     Indication: Analgesic therapy

REACTIONS (14)
  - Hyponatraemic coma [Recovered/Resolved]
  - Dizziness [Recovered/Resolved]
  - Vomiting [Recovered/Resolved]
  - Nausea [Recovered/Resolved]
  - Fall [Recovered/Resolved]
  - Myalgia [Recovered/Resolved]
  - Blood creatine phosphokinase increased [Recovered/Resolved]
  - Coma [Recovered/Resolved]
  - Drug interaction [Recovered/Resolved]
  - Hyponatraemia [Recovered/Resolved]
  - Seizure [Recovered/Resolved]
  - Epilepsy [Recovered/Resolved]
  - Bite [Recovered/Resolved]
  - Water intoxication [Recovered/Resolved]
